FAERS Safety Report 4701374-4 (Version None)
Quarter: 2005Q2

REPORT INFORMATION
  Report Type: 
  Country: None (occurrence: None)
  Receive Date: 20050627
  Receipt Date: 20050614
  Transmission Date: 20051028
  Serious: Yes (Hospitalization, Other)
  Sender: FDA-Public Use
  Company Number: A-CH2005-09603

PATIENT
  Age: 54 Year
  Sex: Female

DRUGS (5)
  1. TRACLEER [Suspect]
     Indication: PULMONARY HYPERTENSION
     Dosage: SEE IMAGE
     Route: 048
     Dates: start: 20050301, end: 20050317
  2. TRACLEER [Suspect]
     Indication: PULMONARY HYPERTENSION
     Dosage: SEE IMAGE
     Route: 048
     Dates: start: 20050318, end: 20050512
  3. INSULIN [Concomitant]
  4. CORTISONE ACETATE [Concomitant]
     Route: 048
  5. FALITHROM (PHENPROCOUMON) [Concomitant]

REACTIONS (1)
  - ANAEMIA [None]
